FAERS Safety Report 7056456-1 (Version None)
Quarter: 2010Q4

REPORT INFORMATION
  Report Type: 
  Country: None (occurrence: None)
  Receive Date: 20101021
  Receipt Date: 20101014
  Transmission Date: 20110411
  Serious: Yes (Disabling)
  Sender: FDA-Public Use
  Company Number: GB-PFIZER INC-2010130907

PATIENT
  Age: 72 Year
  Sex: Female

DRUGS (5)
  1. VORICONAZOLE [Suspect]
     Indication: ASPERGILLOMA
     Dosage: 200 MG, UNK
     Route: 048
     Dates: start: 20101004, end: 20101006
  2. AMPICILLIN SODIUM/SULBACTAM SODIUM [Concomitant]
  3. GENTAMICIN [Concomitant]
  4. ITRACONAZOLE [Concomitant]
  5. PARACETAMOL [Concomitant]

REACTIONS (5)
  - CONFUSIONAL STATE [None]
  - HALLUCINATION, VISUAL [None]
  - HYPOTENSION [None]
  - MALAISE [None]
  - PYREXIA [None]
